FAERS Safety Report 5559994-3 (Version None)
Quarter: 2007Q4

REPORT INFORMATION
  Report Type: 
  Country: None (occurrence: None)
  Receive Date: 20071214
  Receipt Date: 20071019
  Transmission Date: 20080405
  Serious: No
  Sender: FDA-Public Use
  Company Number: US-ABBOTT-07P-163-0421734-00

PATIENT
  Sex: Male
  Weight: 69.462 kg

DRUGS (5)
  1. HUMIRA [Suspect]
     Indication: CROHN'S DISEASE
     Dosage: LOADING DOSE
     Route: 058
     Dates: start: 20071004, end: 20071004
  2. HUMIRA [Suspect]
     Dosage: LOADING DOSE
     Route: 058
     Dates: start: 20071019, end: 20071019
  3. HUMIRA [Suspect]
  4. CIPROFLOXACIN [Concomitant]
     Indication: CROHN'S DISEASE
  5. MERCAPTOPURINE [Concomitant]
     Indication: CROHN'S DISEASE

REACTIONS (3)
  - INJECTION SITE BRUISING [None]
  - INJECTION SITE PAIN [None]
  - INJECTION SITE REACTION [None]
